FAERS Safety Report 6843444-0 (Version None)
Quarter: 2010Q3

REPORT INFORMATION
  Report Type: 
  Country: None (occurrence: None)
  Receive Date: 20100712
  Receipt Date: 20100623
  Transmission Date: 20110219
  Serious: Yes (Hospitalization, Disabling)
  Sender: FDA-Public Use
  Company Number: WAES 1006ESP00032

PATIENT
  Age: 56 Year
  Sex: Male

DRUGS (3)
  1. ISENTRESS [Suspect]
     Indication: HIV INFECTION
     Dosage: 800 MG PO
     Route: 048
     Dates: start: 20081125, end: 20081210
  2. LAMIVUDINE + ZIDOVUDINE [Suspect]
     Dosage: 300-600 MG/DAILY/PO
     Route: 048
     Dates: start: 20040622, end: 20081210
  3. ATORVASTATIN CALCIUM [Concomitant]

REACTIONS (4)
  - PNEUMONIA BACTERIAL [None]
  - PROGRESSIVE MULTIFOCAL LEUKOENCEPHALOPATHY [None]
  - RENAL FAILURE ACUTE [None]
  - RHABDOMYOLYSIS [None]
